FAERS Safety Report 23388400 (Version 16)
Quarter: 2025Q1

REPORT INFORMATION
  Report Type: Spontaneous
  Country: US (occurrence: US)
  Receive Date: 20240110
  Receipt Date: 20250225
  Transmission Date: 20250409
  Serious: Yes (Hospitalization)
  Sender: PFIZER
  Company Number: US-PFIZER INC-PV202300093673

PATIENT
  Age: 74 Year
  Sex: Female
  Weight: 63.492 kg

DRUGS (10)
  1. MEKTOVI [Suspect]
     Active Substance: BINIMETINIB
     Indication: Malignant melanoma
     Dosage: 90 MG, DAILY
  2. MEKTOVI [Suspect]
     Active Substance: BINIMETINIB
     Dosage: 2 TABLETS OF 15 MG
     Route: 048
  3. MEKTOVI [Suspect]
     Active Substance: BINIMETINIB
     Dosage: 135 MG, 2X/DAY
     Route: 048
  4. MEKTOVI [Suspect]
     Active Substance: BINIMETINIB
     Dosage: 3 TABLETS OF 15 MG
     Route: 048
  5. MEKTOVI [Suspect]
     Active Substance: BINIMETINIB
     Dosage: 15 MG 3 TABLETS
     Route: 048
  6. MEKTOVI [Suspect]
     Active Substance: BINIMETINIB
     Dosage: 15 MG 3 TABLETS
     Route: 048
  7. BRAFTOVI [Suspect]
     Active Substance: ENCORAFENIB
     Indication: Malignant melanoma
     Dosage: 450 MG, DAILY
     Route: 048
  8. BRAFTOVI [Suspect]
     Active Substance: ENCORAFENIB
     Dosage: ALSO NOTED AS TAKE 6 CAPSULES DAILY
     Route: 048
  9. BRAFTOVI [Suspect]
     Active Substance: ENCORAFENIB
     Dosage: 450 MG, 6 CAPS, 180 CAPS
     Route: 048
  10. BRAFTOVI [Suspect]
     Active Substance: ENCORAFENIB
     Dosage: 6 CAPS OF 75MG
     Route: 048

REACTIONS (4)
  - Femur fracture [Unknown]
  - Off label use [Unknown]
  - Product prescribing error [Unknown]
  - Product dose omission issue [Unknown]
